FAERS Safety Report 4548594-X (Version None)
Quarter: 2004Q4

REPORT INFORMATION
  Report Type: 
  Country: None (occurrence: None)
  Receive Date: 20041227
  Receipt Date: 20040916
  Transmission Date: 20050328
  Serious: No
  Sender: FDA-Public Use
  Company Number: 04P-163-0273517-00

PATIENT
  Age: 47 Year
  Sex: Male
  Weight: 83.9154 kg

DRUGS (8)
  1. HUMIRA [Suspect]
     Indication: RHEUMATOID ARTHRITIS
     Dosage: 40 MG, 1 IN 2 WK, SUBCUTANEOUS
     Route: 058
     Dates: start: 20040909
  2. METHOTREXATE [Concomitant]
  3. LISINOPRIL [Concomitant]
  4. FOLIC ACID [Concomitant]
  5. ONDANSETRON HYDROCHLORIDE [Concomitant]
  6. FOLINIC ACID [Concomitant]
  7. PREDNISONE [Concomitant]
  8. METOPROLOL [Concomitant]

REACTIONS (2)
  - CONDITION AGGRAVATED [None]
  - HAND DEFORMITY [None]
